FAERS Safety Report 4512243-7 (Version None)
Quarter: 2004Q4

REPORT INFORMATION
  Report Type: 
  Country: None (occurrence: None)
  Receive Date: 20041123
  Receipt Date: 20041110
  Transmission Date: 20050328
  Serious: Yes (Disabling)
  Sender: FDA-Public Use
  Company Number: 2004237678GB

PATIENT
  Age: 32 Year
  Sex: Female
  Weight: 57 kg

DRUGS (2)
  1. SYNAREL SPRAY (NAFARELIN ACETATE) [Suspect]
     Indication: INFERTILITY
     Dosage: NASAL
     Route: 045
  2. GONADOTROPINS (GONADOTROPINS) [Concomitant]

REACTIONS (6)
  - BALANCE DISORDER [None]
  - HEMIPARESIS [None]
  - HYPOAESTHESIA [None]
  - NERVOUS SYSTEM DISORDER [None]
  - PARAESTHESIA [None]
  - PRIMARY PROGRESSIVE MULTIPLE SCLEROSIS [None]
